FAERS Safety Report 5739685-6 (Version None)
Quarter: 2008Q2

REPORT INFORMATION
  Report Type: 
  Country: None (occurrence: None)
  Receive Date: 20080513
  Receipt Date: 20080507
  Transmission Date: 20081010
  Serious: Yes (Life-Threatening)
  Sender: FDA-Public Use
  Company Number: LTI2008AP00144

PATIENT
  Age: 75 Year
  Sex: Male

DRUGS (1)
  1. ACTOS [Suspect]
     Dosage: ORAL
     Route: 048
     Dates: end: 20080101

REACTIONS (2)
  - CARDIAC FAILURE [None]
  - CARDIAC FIBRILLATION [None]
